FAERS Safety Report 8574108-3 (Version None)
Quarter: 2012Q3

REPORT INFORMATION
  Report Type: 
  Country: None (occurrence: None)
  Receive Date: 20120806
  Receipt Date: 20120801
  Transmission Date: 20120928
  Serious: Yes (Other)
  Sender: FDA-Public Use
  Company Number: PHHY2012CA066760

PATIENT
  Age: 52 Year
  Sex: Male

DRUGS (3)
  1. CYMBALTA [Concomitant]
  2. AMITRIPTYLINE HCL [Concomitant]
  3. LEVOFLOXACIN [Suspect]
     Indication: PROSTATITIS
     Dosage: 750 MG
     Route: 048

REACTIONS (2)
  - APHONIA [None]
  - PARAESTHESIA ORAL [None]
